FAERS Safety Report 9407401 (Version 2)
Quarter: 2013Q3

REPORT INFORMATION
  Report Type: Spontaneous
  Country: US (occurrence: US)
  Receive Date: 20130718
  Receipt Date: 20130919
  Transmission Date: 20140515
  Serious: Yes (Other)
  Sender: FDA-Public Use
  Company Number: US-NOVOPROD-382607

PATIENT
  Age: 72 Year
  Sex: Male
  Weight: 97.05 kg

DRUGS (4)
  1. VICTOZA [Suspect]
     Indication: TYPE 2 DIABETES MELLITUS
     Dosage: 1.8 MG, QD
     Route: 058
     Dates: start: 20120703, end: 20130514
  2. METFORMIN [Concomitant]
     Indication: TYPE 2 DIABETES MELLITUS
     Dosage: UNK
     Route: 048
  3. LUPRON [Concomitant]
     Indication: PROSTATE CANCER STAGE I
     Dosage: 45 MG VIA INJECTION
     Dates: start: 20120911
  4. LUPRON [Concomitant]
     Dosage: UNK
     Dates: start: 20130429

REACTIONS (2)
  - Pancreatitis chronic [Not Recovered/Not Resolved]
  - Thyroid neoplasm [Unknown]
